FAERS Safety Report 22733722 (Version 3)
Quarter: 2023Q4

REPORT INFORMATION
  Report Type: Spontaneous
  Country: US (occurrence: US)
  Receive Date: 20230720
  Receipt Date: 20231012
  Transmission Date: 20240110
  Serious: No
  Sender: FDA-Public Use
  Company Number: US-SA-SAC20230719001189

PATIENT
  Age: 43 Year
  Sex: Female

DRUGS (1)
  1. DUPIXENT [Suspect]
     Active Substance: DUPILUMAB
     Indication: Dermatitis atopic
     Dosage: 300 MG, QOW
     Route: 058
     Dates: start: 202202

REACTIONS (8)
  - Weight increased [Unknown]
  - Periorbital irritation [Unknown]
  - Sensitive skin [Unknown]
  - Abdominal distension [Unknown]
  - Dry skin [Unknown]
  - Skin hyperpigmentation [Unknown]
  - Injection site swelling [Unknown]
  - Dry eye [Unknown]
